FAERS Safety Report 8369256-7 (Version None)
Quarter: 2012Q2

REPORT INFORMATION
  Report Type: 
  Country: None (occurrence: None)
  Receive Date: 20120518
  Receipt Date: 20120514
  Transmission Date: 20120825
  Serious: Yes (Hospitalization)
  Sender: FDA-Public Use
  Company Number: US-BAYER-2012-013063

PATIENT
  Age: 32 Year
  Sex: Female
  Weight: 113 kg

DRUGS (5)
  1. ASCORBIC ACID [Concomitant]
     Dosage: UNK UNK, PRN
  2. IBUPROFEN (ADVIL) [Concomitant]
     Dosage: UNK UNK, PRN
  3. LEVAQUIN [Concomitant]
     Dosage: 500 MG, UNK
  4. YAZ [Suspect]
     Indication: CONTRACEPTION
     Dosage: UNK
     Dates: start: 20080101, end: 20090101
  5. YAZ [Suspect]
     Indication: MENSTRUAL CYCLE MANAGEMENT

REACTIONS (7)
  - CHOLECYSTITIS INFECTIVE [None]
  - DYSPEPSIA [None]
  - CHOLELITHIASIS [None]
  - PANCREATITIS [None]
  - CHOLECYSTECTOMY [None]
  - EMOTIONAL DISTRESS [None]
  - ABDOMINAL PAIN [None]
